FAERS Safety Report 9168770 (Version 1)
Quarter: 2013Q1

REPORT INFORMATION
  Report Type: Spontaneous
  Country: FR (occurrence: FR)
  Receive Date: 20130318
  Receipt Date: 20130318
  Transmission Date: 20140127
  Serious: Yes (Hospitalization)
  Sender: FDA-Public Use
  Company Number: FR-PFIZER INC-2013085553

PATIENT
  Age: 68 Year
  Sex: Male

DRUGS (10)
  1. INSPRA [Suspect]
     Dosage: 25 MG, DAILY
     Route: 048
     Dates: start: 20130202, end: 20130222
  2. CALCIPARIN [Suspect]
     Dosage: 0.2 ML, 2X/DAY
     Route: 058
     Dates: start: 20130129, end: 20130222
  3. CLAMOXYL [Suspect]
     Indication: HELICOBACTER INFECTION
     Dosage: 1 G, 2X/DAY
     Route: 048
     Dates: start: 20130206, end: 20130216
  4. ZECLAR [Suspect]
     Indication: HELICOBACTER INFECTION
     Dosage: 500 MG, 2X/DAY
     Route: 048
     Dates: start: 20130206, end: 20130216
  5. SEROPLEX [Suspect]
     Dosage: 10 MG, DAILY
     Route: 048
     Dates: start: 20130207, end: 20130213
  6. PARACETAMOL [Suspect]
     Dosage: 1 G, 4X/DAY
     Route: 042
     Dates: start: 20130209, end: 20130213
  7. CRESTOR [Suspect]
     Dosage: 5 MG, DAILY
     Route: 048
     Dates: start: 20130125, end: 20130222
  8. PLAVIX [Suspect]
     Dosage: 75 MG, DAILY
     Route: 048
     Dates: start: 20130204, end: 20130213
  9. KARDEGIC [Suspect]
     Dosage: 75 MG, DAILY
     Route: 048
     Dates: start: 20130213, end: 20130222
  10. INEXIUM [Suspect]
     Dosage: 40 MG, DAILY
     Route: 048
     Dates: start: 20130128, end: 20130227

REACTIONS (2)
  - Thrombocytopenia [Recovering/Resolving]
  - Neutropenia [Recovering/Resolving]
